FAERS Safety Report 7973458-9 (Version None)
Quarter: 2011Q4

REPORT INFORMATION
  Report Type: 
  Country: None (occurrence: None)
  Receive Date: 20111209
  Receipt Date: 20111128
  Transmission Date: 20120403
  Serious: Yes (Other)
  Sender: FDA-Public Use
  Company Number: 2011P1013477

PATIENT
  Age: 70 Year
  Sex: Female

DRUGS (8)
  1. ACETYLSALICYLIC ACID SRT [Concomitant]
  2. SIMVASTATIN [Concomitant]
  3. DOXYCYCLINE [Suspect]
     Dosage: 100 MG;BID
  4. LISINOPRIL PLUS HYDROCHLOROTHIAZIDE [Concomitant]
  5. AMLODIPINE [Concomitant]
  6. BISOPROLOL FUMARATE [Concomitant]
  7. MOXONIDIN [Concomitant]
  8. METFORMIN HCL [Concomitant]

REACTIONS (3)
  - DERMATITIS EXFOLIATIVE [None]
  - DERMATITIS CONTACT [None]
  - PAPULE [None]
